FAERS Safety Report 9184859 (Version 1)
Quarter: 2013Q1

REPORT INFORMATION
  Report Type: Spontaneous
  Country: US (occurrence: US)
  Receive Date: 20130325
  Receipt Date: 20130325
  Transmission Date: 20140127
  Serious: No
  Sender: FDA-Public Use
  Company Number: US-BRISTOL-MYERS SQUIBB COMPANY-16506800

PATIENT
  Age: 68 Year
  Sex: Male
  Weight: 86.17 kg

DRUGS (1)
  1. ERBITUX [Suspect]
     Indication: THROAT CANCER
     Dosage: 2ND PART OF REGIME
     Dates: start: 2012

REACTIONS (4)
  - Oral disorder [Recovering/Resolving]
  - Rash [Recovering/Resolving]
  - Weight decreased [Unknown]
  - Skin fissures [Recovering/Resolving]
